FAERS Safety Report 4838949-8 (Version None)
Quarter: 2005Q4

REPORT INFORMATION
  Report Type: 
  Country: None (occurrence: None)
  Receive Date: 20051024
  Receipt Date: 20050928
  Transmission Date: 20060501
  Serious: Yes (Other)
  Sender: FDA-Public Use
  Company Number: 218170

PATIENT
  Age: 66 Year
  Sex: Female

DRUGS (6)
  1. XOLAIR [Suspect]
     Indication: ASTHMA
     Dosage: 350 MG,Q2W, SUBCUTANEOUS
     Route: 058
     Dates: start: 20031106, end: 20050901
  2. SPIRIVA [Concomitant]
  3. SYNTHROID [Concomitant]
  4. VENTOLIN (ALBUTEROL, ALBUTEROL SULFATE) [Concomitant]
  5. FOSAMAX [Concomitant]
  6. ASPIRIN [Concomitant]

REACTIONS (1)
  - BREAST CANCER [None]
